FAERS Safety Report 9677980 (Version 1)
Quarter: 2013Q4

REPORT INFORMATION
  Report Type: Spontaneous
  Country: US (occurrence: US)
  Receive Date: 20131108
  Receipt Date: 20131108
  Transmission Date: 20140711
  Serious: Yes (Other)
  Sender: FDA-Public Use
  Company Number: US-BAYER-2013-135096

PATIENT
  Age: 38 Year
  Sex: Female
  Weight: 72.11 kg

DRUGS (20)
  1. YAZ [Suspect]
     Indication: CONTRACEPTION
     Dosage: UNK
  2. ASMANEX [Concomitant]
     Dosage: 220 MCG/24HR, UNK
  3. VENTOLIN [Concomitant]
  4. ZITHROMAX [Concomitant]
  5. VALTREX [Concomitant]
  6. HALFLYTELY AND BISACODYL BOWEL PREP WITH FLAVOR PACKS [Concomitant]
  7. VERSED [Concomitant]
     Dosage: TOTAL 3 MG
     Route: 042
     Dates: start: 20100614
  8. FENTANYL [Concomitant]
     Dosage: TOTAL 175 MCG
     Route: 042
     Dates: start: 20100614
  9. BENADRYL [Concomitant]
     Dosage: TOTAL 25 MG
     Route: 042
     Dates: start: 20100614
  10. LOVAZA [Concomitant]
     Dosage: 500
  11. KETOROLAC [Concomitant]
     Dosage: 10 MG, UNK
  12. TRAMADOL [Concomitant]
     Dosage: 50 MG, UNK
  13. TYLENOL WITH CODEINE [Concomitant]
  14. WELLBUTRIN XL [Concomitant]
     Dosage: 300 MG, UNK
  15. VYVANSE [Concomitant]
     Dosage: 30 MG, UNK
  16. ALBUTEROL [Concomitant]
  17. MULTIVITAMINS [Concomitant]
  18. VITAMIN D [Concomitant]
  19. NIACIN [Concomitant]
  20. ADVIL [Concomitant]

REACTIONS (1)
  - Deep vein thrombosis [Recovered/Resolved]
